FAERS Safety Report 18150101 (Version 1)
Quarter: 2020Q3

REPORT INFORMATION
  Report Type: Spontaneous
  Country: JP (occurrence: JP)
  Receive Date: 20200814
  Receipt Date: 20200814
  Transmission Date: 20201103
  Serious: Yes (Hospitalization)
  Sender: FDA-Public Use
  Company Number: JP-SGP-000036

PATIENT
  Age: 47 Year

DRUGS (1)
  1. METHYLPREDNISOLONE. [Suspect]
     Active Substance: METHYLPREDNISOLONE
     Indication: ISCHAEMIC STROKE
     Route: 042

REACTIONS (4)
  - Hemiparesis [Unknown]
  - Condition aggravated [Unknown]
  - Aphasia [Unknown]
  - Product use in unapproved indication [Unknown]
